FAERS Safety Report 8179911-X (Version None)
Quarter: 2012Q1

REPORT INFORMATION
  Report Type: 
  Country: None (occurrence: None)
  Receive Date: 20120302
  Receipt Date: 20120222
  Transmission Date: 20120608
  Serious: Yes (Hospitalization)
  Sender: FDA-Public Use
  Company Number: IT-BRISTOL-MYERS SQUIBB COMPANY-16412413

PATIENT
  Age: 21 Year
  Sex: Female

DRUGS (2)
  1. AUGMENTIN '125' [Concomitant]
     Route: 048
  2. COUMADIN [Suspect]
     Dates: start: 20050101, end: 20120130

REACTIONS (2)
  - TOOTH AVULSION [None]
  - GINGIVAL BLEEDING [None]
